FAERS Safety Report 9187246 (Version 2)
Quarter: 2013Q2

REPORT INFORMATION
  Report Type: Report from Study
  Country: BR (occurrence: BR)
  Receive Date: 20130325
  Receipt Date: 20130411
  Transmission Date: 20140414
  Serious: Yes (Hospitalization)
  Sender: FDA-Public Use
  Company Number: BR-ROCHE-1178332

PATIENT
  Age: 75 Year
  Sex: Female
  Weight: 69.7 kg

DRUGS (9)
  1. BLINDED TOCILIZUMAB [Suspect]
     Indication: RHEUMATOID ARTHRITIS
     Dosage: ON 10/DEC/2012, THE PATIENT HAD MOST RECENT DOSE OF BLINDED TOCILIZUMAB
     Route: 058
     Dates: start: 20111031
  2. TOCILIZUMAB [Suspect]
     Indication: RHEUMATOID ARTHRITIS
     Dosage: ON 14/DEC/2012, THE PATIENT HAD MOST RECENT DOSE OF TOCILIZUMAB 162 MG.
     Route: 058
     Dates: start: 20120416, end: 20130319
  3. HYDROXYCHLOROQUINE [Concomitant]
     Indication: RHEUMATOID ARTHRITIS
     Route: 048
     Dates: start: 201102
  4. VALSARTAN [Concomitant]
     Indication: RHEUMATOID ARTHRITIS
     Route: 048
     Dates: start: 2003
  5. ATENOLOL [Concomitant]
     Indication: RHEUMATOID ARTHRITIS
     Route: 048
     Dates: start: 20111213, end: 201212
  6. ATENOLOL [Concomitant]
     Route: 065
     Dates: start: 20111121, end: 20111212
  7. CAPTOPRIL [Concomitant]
     Route: 048
     Dates: start: 20111031, end: 20111031
  8. CAPTOPRIL [Concomitant]
     Route: 048
     Dates: start: 20120416, end: 20120416
  9. BUSCOPAN [Concomitant]
     Route: 048
     Dates: start: 20120602, end: 20120607

REACTIONS (2)
  - Diarrhoea [Recovered/Resolved]
  - Myelodysplastic syndrome [Not Recovered/Not Resolved]
